FAERS Safety Report 6671432-6 (Version None)
Quarter: 2010Q2

REPORT INFORMATION
  Report Type: 
  Country: None (occurrence: None)
  Receive Date: 20100406
  Receipt Date: 20100406
  Transmission Date: 20101027
  Serious: Yes (Life-Threatening, Hospitalization)
  Sender: FDA-Public Use
  Company Number: None

PATIENT
  Age: 86 Year
  Sex: Female
  Weight: 61.2356 kg

DRUGS (2)
  1. WARFARIN SODIUM [Suspect]
     Dosage: 2.5 DILY PO
     Route: 048
  2. METRONIDAZOLE [Suspect]
     Dosage: 250 TID PO
     Route: 048

REACTIONS (15)
  - BACK PAIN [None]
  - COAGULOPATHY [None]
  - COLITIS ISCHAEMIC [None]
  - CONFUSIONAL STATE [None]
  - DEHYDRATION [None]
  - DISCOMFORT [None]
  - DYSPNOEA [None]
  - FLUID OVERLOAD [None]
  - HAEMATOCHEZIA [None]
  - HAEMATOCRIT DECREASED [None]
  - HAEMOGLOBIN DECREASED [None]
  - INFLAMMATORY BOWEL DISEASE [None]
  - INTERNATIONAL NORMALISED RATIO INCREASED [None]
  - OEDEMA PERIPHERAL [None]
  - RECTAL HAEMORRHAGE [None]
